FAERS Safety Report 5685324-2 (Version None)
Quarter: 2008Q1

REPORT INFORMATION
  Report Type: 
  Country: None (occurrence: None)
  Receive Date: 20080328
  Receipt Date: 20080318
  Transmission Date: 20080703
  Serious: Yes (Hospitalization)
  Sender: FDA-Public Use
  Company Number: AU-PFIZER INC-2008024722

PATIENT
  Age: 50 Year
  Sex: Female

DRUGS (3)
  1. ZELDOX (CAPSULES) [Suspect]
  2. PROZAC [Concomitant]
  3. ANTIINFLAMMATORY/ANTIRHEUMATIC PRODUCTS [Concomitant]

REACTIONS (2)
  - ANAPHYLACTIC REACTION [None]
  - OEDEMA [None]
